FAERS Safety Report 24357102 (Version 1)
Quarter: 2024Q3

REPORT INFORMATION
  Report Type: Spontaneous
  Country: US (occurrence: None)
  Receive Date: 20240923
  Receipt Date: 20240923
  Transmission Date: 20241016
  Serious: No
  Sender: Public
  Company Number: None

PATIENT
  Age: 81 Year
  Sex: Female
  Weight: 0.0 kg

DRUGS (1)
  1. VTAMA [Suspect]
     Active Substance: TAPINAROF
     Indication: Dermatitis atopic
     Dosage: FREQUENCY : DAILY;?OTHER ROUTE : APPLYATHINLAYERTOAFFECTED AREAS ;?
     Route: 050
     Dates: start: 202408

REACTIONS (1)
  - Upper limb fracture [None]
